FAERS Safety Report 8989298 (Version 1)
Quarter: 2012Q4

REPORT INFORMATION
  Report Type: 
  Country: GB (occurrence: GB)
  Receive Date: 20121228
  Receipt Date: 20121228
  Transmission Date: 20130627
  Serious: Yes (Other)
  Sender: FDA-Public Use
  Company Number: GB-RANBAXY-2012R1-63507

PATIENT
  Age: 24 Month
  Sex: Female

DRUGS (1)
  1. AMOXICILLIN [Suspect]
     Indication: LOWER RESPIRATORY TRACT INFECTION
     Dosage: UNK
     Route: 048
     Dates: start: 20121122

REACTIONS (2)
  - Abnormal behaviour [Recovering/Resolving]
  - Affective disorder [Recovering/Resolving]
